FAERS Safety Report 4685335-X (Version None)
Quarter: 2005Q2

REPORT INFORMATION
  Report Type: 
  Country: None (occurrence: None)
  Receive Date: 20050608
  Receipt Date: 20050531
  Transmission Date: 20051028
  Serious: Yes (Hospitalization)
  Sender: FDA-Public Use
  Company Number: IT-ROCHE-406250

PATIENT
  Age: 66 Year
  Sex: Male

DRUGS (4)
  1. ROCEPHIN [Suspect]
     Indication: PROPHYLAXIS
     Route: 030
     Dates: start: 20050516, end: 20050516
  2. BETAMETHASONE L.F.M. [Concomitant]
     Route: 030
  3. DOXAZOSIN MESYLATE [Concomitant]
  4. FINASTERIDE [Concomitant]

REACTIONS (1)
  - SHOCK [None]
